FAERS Safety Report 6821722-9 (Version None)
Quarter: 2010Q3

REPORT INFORMATION
  Report Type: 
  Country: None (occurrence: None)
  Receive Date: 20100702
  Receipt Date: 20100616
  Transmission Date: 20110219
  Serious: Yes (Hospitalization)
  Sender: FDA-Public Use
  Company Number: 1-23059890

PATIENT
  Age: 65 Year
  Sex: Male
  Weight: 109.7705 kg

DRUGS (2)
  1. WARFARIN SODIUM [Suspect]
     Indication: PULMONARY EMBOLISM
     Dosage: 2.5-5 MG, DAILY, ORAL
     Route: 048
     Dates: start: 20080101
  2. BETALOC [Concomitant]

REACTIONS (7)
  - ANGINA PECTORIS [None]
  - BLOOD URINE PRESENT [None]
  - CHEST PAIN [None]
  - CONTUSION [None]
  - FEELING ABNORMAL [None]
  - INTERNATIONAL NORMALISED RATIO INCREASED [None]
  - PYREXIA [None]
